FAERS Safety Report 14651808 (Version 1)
Quarter: 2018Q1

REPORT INFORMATION
  Report Type: Spontaneous
  Country: ES (occurrence: ES)
  Receive Date: 20180317
  Receipt Date: 20180317
  Transmission Date: 20180509
  Serious: Yes (Other)
  Sender: FDA-Public Use
  Company Number: ES-AUROBINDO-AUR-APL-2018-015342

PATIENT
  Age: 28 Year
  Sex: Male

DRUGS (2)
  1. ARIPIPRAZOL [Suspect]
     Active Substance: ARIPIPRAZOLE
     Indication: SCHIZOPHRENIA
     Dosage: ()
     Route: 065
  2. ZUCLOPENTHIXOL DECANOATE [Suspect]
     Active Substance: ZUCLOPENTHIXOL DECANOATE
     Indication: SCHIZOPHRENIA
     Dosage: ()
     Route: 065

REACTIONS (4)
  - Parkinsonism [Unknown]
  - Akathisia [Unknown]
  - Sedation [Unknown]
  - Drug ineffective [Unknown]
